FAERS Safety Report 23845897 (Version 1)
Quarter: 2024Q2

REPORT INFORMATION
  Report Type: Spontaneous
  Country: US (occurrence: US)
  Receive Date: 20240512
  Receipt Date: 20240512
  Transmission Date: 20240716
  Serious: No
  Sender: FDA-Public Use
  Company Number: US-CIPLA LTD.-2023US08173

PATIENT

DRUGS (2)
  1. ALBUTEROL [Suspect]
     Active Substance: ALBUTEROL
     Indication: Product used for unknown indication
     Dosage: 2 PUFFS IN MORNING, 2 PUFFS IN THE AFTERNOON AND 2 PUFFS AT NIGHT, TID
     Route: 065
     Dates: start: 1976
  2. ALBUTEROL [Suspect]
     Active Substance: ALBUTEROL
     Dosage: UNK, 2 PUFFS IN MORNING, 2 PUFFS IN THE AFTERNOON AND 2 PUFFS AT NIGHT, TID
     Route: 065
     Dates: start: 202311

REACTIONS (4)
  - Dyspnoea [Unknown]
  - Device delivery system issue [Unknown]
  - Device malfunction [Unknown]
  - Device issue [Unknown]

NARRATIVE: CASE EVENT DATE: 20230101
